FAERS Safety Report 23813332 (Version 1)
Quarter: 2024Q2

REPORT INFORMATION
  Report Type: Spontaneous
  Country: ES (occurrence: None)
  Receive Date: 20240503
  Receipt Date: 20240503
  Transmission Date: 20240716
  Serious: Yes (Other)
  Sender: FDA-Public Use
  Company Number: 2024A099863

PATIENT
  Age: 81 Year
  Sex: Male

DRUGS (7)
  1. DAPAGLIFLOZIN [Suspect]
     Active Substance: DAPAGLIFLOZIN
     Indication: Proteinuria
     Dosage: 10.0MG UNKNOWN
     Route: 048
     Dates: start: 20240304, end: 20240409
  2. DAFIRO [Concomitant]
     Active Substance: AMLODIPINE\VALSARTAN
  3. NEVANAC [Concomitant]
     Active Substance: NEPAFENAC
  4. LEXATIN [Concomitant]
  5. DUTAMSIN [Concomitant]
  6. CHOLECALCIFEROL [Concomitant]
     Active Substance: CHOLECALCIFEROL
  7. PANTOPRAZOLE SODIUM [Concomitant]
     Active Substance: PANTOPRAZOLE SODIUM

REACTIONS (4)
  - Constipation [Unknown]
  - Dizziness [Unknown]
  - Rash [Unknown]
  - Back pain [Unknown]

NARRATIVE: CASE EVENT DATE: 20240405
